FAERS Safety Report 25098970 (Version 1)
Quarter: 2025Q1

REPORT INFORMATION
  Report Type: Spontaneous
  Country: HR (occurrence: HR)
  Receive Date: 20250320
  Receipt Date: 20250320
  Transmission Date: 20250408
  Serious: Yes (Other)
  Sender: BANNER
  Company Number: None

PATIENT
  Age: 14 Year
  Sex: Male
  Weight: 72 kg

DRUGS (1)
  1. IBUPROFEN [Suspect]
     Active Substance: IBUPROFEN
     Indication: Product used for unknown indication
     Dosage: 111 MG/KG
     Dates: start: 20250129, end: 20250129

REACTIONS (3)
  - Abdominal pain [Unknown]
  - Melaena [Unknown]
  - Intentional overdose [Unknown]

NARRATIVE: CASE EVENT DATE: 20250129
